FAERS Safety Report 20795126 (Version 2)
Quarter: 2022Q2

REPORT INFORMATION
  Report Type: Spontaneous
  Country: IT (occurrence: IT)
  Receive Date: 20220506
  Receipt Date: 20220611
  Transmission Date: 20220720
  Serious: Yes (Death)
  Sender: FDA-Public Use
  Company Number: None

PATIENT
  Age: 55 Year
  Sex: Female
  Weight: 80 kg

DRUGS (2)
  1. PACLITAXEL [Suspect]
     Active Substance: PACLITAXEL
     Indication: Chemotherapy
     Dosage: 189 MG , FREQUENCY TIME : 1 CYCLICAL , DURATION : 196 DAYS
     Route: 042
     Dates: start: 20210622, end: 20220104
  2. TECENTRIQ [Suspect]
     Active Substance: ATEZOLIZUMAB
     Indication: Chemotherapy
     Dosage: 840 MG , FREQUENCY TIME : 1 CYCLICAL , DURATION : 196 DAYS
     Route: 042
     Dates: start: 20210622, end: 20220104

REACTIONS (4)
  - Dyspnoea [Fatal]
  - Diarrhoea [Fatal]
  - Pyrexia [Fatal]
  - Productive cough [Fatal]

NARRATIVE: CASE EVENT DATE: 20220117
